FAERS Safety Report 12491839 (Version 4)
Quarter: 2016Q4

REPORT INFORMATION
  Report Type: Report from Study
  Country: GB (occurrence: GB)
  Receive Date: 20160623
  Receipt Date: 20161222
  Transmission Date: 20170207
  Serious: Yes (Hospitalization, Other)
  Sender: FDA-Public Use
  Company Number: GB-ALEXION PHARMACEUTICALS INC-A201604585

PATIENT
  Age: 5 Year
  Sex: Male
  Weight: 18 kg

DRUGS (2)
  1. ASFOTASE ALFA [Suspect]
     Active Substance: ASFOTASE ALFA
     Dosage: 9 MG/KG, QW WITH A TOTAL DOSE OF 54 MG PER DOSE
     Route: 058
  2. ASFOTASE ALFA [Suspect]
     Active Substance: ASFOTASE ALFA
     Indication: HYPOPHOSPHATASIA
     Dosage: 3 MG/KG, TIW
     Route: 058

REACTIONS (1)
  - Temporal lobe epilepsy [Recovered/Resolved]

NARRATIVE: CASE EVENT DATE: 20160528
